FAERS Safety Report 24531094 (Version 2)
Quarter: 2024Q4

REPORT INFORMATION
  Report Type: Report from Study
  Country: US (occurrence: US)
  Receive Date: 20241022
  Receipt Date: 20241025
  Transmission Date: 20250115
  Serious: No
  Sender: TAKEDA
  Company Number: US-TAKEDA-2024TUS105851

PATIENT
  Sex: Female

DRUGS (7)
  1. LANADELUMAB [Suspect]
     Active Substance: LANADELUMAB
     Indication: Hereditary angioedema
     Dosage: 150 MILLIGRAM, Q2WEEKS
     Route: 065
     Dates: start: 20241016
  2. LANADELUMAB [Suspect]
     Active Substance: LANADELUMAB
     Indication: Hereditary angioedema
     Dosage: 150 MILLIGRAM, Q2WEEKS
     Route: 065
     Dates: start: 20241016
  3. LANADELUMAB [Suspect]
     Active Substance: LANADELUMAB
     Indication: Hereditary angioedema
     Dosage: 150 MILLIGRAM, Q2WEEKS
     Route: 065
     Dates: start: 20241016
  4. LANADELUMAB [Suspect]
     Active Substance: LANADELUMAB
     Indication: Immune system disorder
     Dosage: 150 MILLIGRAM, Q2WEEKS
     Route: 058
     Dates: start: 202410
  5. LANADELUMAB [Suspect]
     Active Substance: LANADELUMAB
     Indication: Immune system disorder
     Dosage: 150 MILLIGRAM, Q2WEEKS
     Route: 058
     Dates: start: 202410
  6. LANADELUMAB [Suspect]
     Active Substance: LANADELUMAB
     Indication: Immune system disorder
     Dosage: 150 MILLIGRAM, Q2WEEKS
     Route: 058
     Dates: start: 202410
  7. REMICADE [Concomitant]
     Active Substance: INFLIXIMAB

REACTIONS (4)
  - Abdominal pain [Unknown]
  - Gastrointestinal disorder [Unknown]
  - Injection site rash [Unknown]
  - Injection site pruritus [Unknown]
